FAERS Safety Report 18534234 (Version 1)
Quarter: 2020Q4

REPORT INFORMATION
  Report Type: Spontaneous
  Country: MA (occurrence: MA)
  Receive Date: 20201123
  Receipt Date: 20201123
  Transmission Date: 20210114
  Serious: Yes (Hospitalization)
  Sender: FDA-Public Use
  Company Number: MA-VIRTUS PHARMACEUTICALS, LLC-2020VTS00090

PATIENT
  Age: 42 Year
  Sex: Male

DRUGS (2)
  1. ALBUTEROL. [Suspect]
     Active Substance: ALBUTEROL
     Indication: ASTHMA
     Dosage: INCREASED DOSES AT HOME
  2. ALBUTEROL. [Suspect]
     Active Substance: ALBUTEROL
     Dosage: 5 MG EVERY 20 MIN IN 7 DOSES (35 MG TOTAL)

REACTIONS (4)
  - Intentional product misuse [Recovered/Resolved]
  - Asthma [Recovered/Resolved]
  - Lactic acidosis [Recovered/Resolved]
  - Respiratory failure [Recovered/Resolved]
